FAERS Safety Report 6244757-6 (Version None)
Quarter: 2009Q2

REPORT INFORMATION
  Report Type: 
  Country: None (occurrence: None)
  Receive Date: 20090623
  Receipt Date: 20090623
  Transmission Date: 20091009
  Serious: Yes (Other)
  Sender: FDA-Public Use
  Company Number: None

PATIENT
  Age: 53 Year
  Sex: Female
  Weight: 49.8957 kg

DRUGS (2)
  1. ZICAM NASAL SPRAY MATRIXX [Suspect]
     Indication: NASOPHARYNGITIS
     Dosage: ONE SPRAY ONCE NASAL
     Route: 045
     Dates: start: 20070504, end: 20070504
  2. ZICAM NASAL SPRAY MATRIXX [Suspect]
     Dosage: ONE SPRAY ONCE NASAL
     Route: 045
     Dates: start: 20070504, end: 20070504

REACTIONS (6)
  - AGEUSIA [None]
  - ANOSMIA [None]
  - HYPOGEUSIA [None]
  - HYPOSMIA [None]
  - NASAL DISCOMFORT [None]
  - WEIGHT DECREASED [None]
